FAERS Safety Report 7909643-1 (Version None)
Quarter: 2011Q4

REPORT INFORMATION
  Report Type: 
  Country: None (occurrence: None)
  Receive Date: 20111111
  Receipt Date: 20111108
  Transmission Date: 20120403
  Serious: Yes (Life-Threatening, Hospitalization, Disabling, Other)
  Sender: FDA-Public Use
  Company Number: US-GLAXOSMITHKLINE-A0949898A

PATIENT
  Age: 63 Year
  Sex: Female
  Weight: 87.7 kg

DRUGS (12)
  1. KEPPRA [Concomitant]
  2. ZYPREXA [Concomitant]
  3. DILANTIN [Concomitant]
  4. TYKERB [Suspect]
     Indication: BREAST CANCER
     Dosage: 1250MG PER DAY
     Route: 048
  5. TOPROL-XL [Concomitant]
  6. LEVOPHED [Concomitant]
  7. HALDOL [Concomitant]
  8. WARFARIN SODIUM [Suspect]
     Indication: CARDIOVERSION
     Dosage: 3MG PER DAY
     Route: 048
     Dates: end: 20111001
  9. VITAMIN D [Concomitant]
  10. FEMARA [Concomitant]
  11. AMIODARONE HCL [Concomitant]
  12. LAMICTAL [Concomitant]

REACTIONS (7)
  - SUBDURAL HAEMATOMA [None]
  - PNEUMOCEPHALUS [None]
  - EXTRADURAL HAEMATOMA [None]
  - HAEMATOMA EVACUATION [None]
  - HAEMATOCRIT DECREASED [None]
  - FALL [None]
  - ECCHYMOSIS [None]
